FAERS Safety Report 16791083 (Version 1)
Quarter: 2019Q3

REPORT INFORMATION
  Report Type: Spontaneous
  Country: US (occurrence: US)
  Receive Date: 20190719
  Receipt Date: 20190719
  Transmission Date: 20191005
  Serious: No
  Sender: FDA-Public Use
  Company Number: None

PATIENT
  Age: 69 Year
  Sex: Female

DRUGS (10)
  1. ALLOPURINOL. [Concomitant]
     Active Substance: ALLOPURINOL
  2. TELMISARATAN [Concomitant]
  3. GLATIRAMER 40MG/ML PFS [Suspect]
     Active Substance: GLATIRAMER
     Indication: NEOPLASM MALIGNANT
     Route: 058
     Dates: start: 20190531
  4. LANSOPRAZOLE. [Concomitant]
     Active Substance: LANSOPRAZOLE
  5. DESLORATADIN [Concomitant]
     Active Substance: DESLORATADINE
  6. FOLIC ACID. [Concomitant]
     Active Substance: FOLIC ACID
  7. GABAPENTIN. [Concomitant]
     Active Substance: GABAPENTIN
  8. TRIAMT/HCTZ [Concomitant]
     Active Substance: HYDROCHLOROTHIAZIDE\TRIAMTERENE
  9. MEGESTROL AC [Concomitant]
  10. POT CHLORIDE [Concomitant]
     Active Substance: POTASSIUM CHLORIDE

REACTIONS (2)
  - Oropharyngeal pain [None]
  - Pain in extremity [None]

NARRATIVE: CASE EVENT DATE: 20190719
